FAERS Safety Report 5499368-7 (Version None)
Quarter: 2007Q4

REPORT INFORMATION
  Report Type: 
  Country: None (occurrence: None)
  Receive Date: 20071026
  Receipt Date: 20071022
  Transmission Date: 20080405
  Serious: Yes (Life-Threatening, Other)
  Sender: FDA-Public Use
  Company Number: A0684716A

PATIENT
  Age: 27 Year
  Sex: Female

DRUGS (3)
  1. LAMICTAL [Suspect]
     Indication: BIPOLAR DISORDER
     Dosage: 50MG SEE DOSAGE TEXT
     Route: 048
     Dates: start: 20070803, end: 20070823
  2. TOPAMAX [Concomitant]
  3. BIRTH CONTROL [Concomitant]

REACTIONS (5)
  - BLISTER [None]
  - GENITAL RASH [None]
  - LIP SWELLING [None]
  - ORAL MUCOSAL BLISTERING [None]
  - RASH [None]
